FAERS Safety Report 7198061-2 (Version None)
Quarter: 2010Q4

REPORT INFORMATION
  Report Type: 
  Country: None (occurrence: None)
  Receive Date: 20101213
  Receipt Date: 20101206
  Transmission Date: 20110411
  Serious: Yes (Hospitalization, Other)
  Sender: FDA-Public Use
  Company Number: 2010MA005087

PATIENT
  Age: 16 Year
  Sex: Female

DRUGS (1)
  1. CITALOPRAM HYDROBROMIDE [Suspect]
     Indication: DEPRESSION
     Dosage: 10 MG, PO
     Route: 048
     Dates: start: 20101001, end: 20101102

REACTIONS (2)
  - PARANOIA [None]
  - SELF-INJURIOUS IDEATION [None]
